FAERS Safety Report 4324614-2 (Version None)
Quarter: 2004Q1

REPORT INFORMATION
  Report Type: 
  Country: None (occurrence: None)
  Receive Date: 20040323
  Receipt Date: 20040309
  Transmission Date: 20041129
  Serious: Yes (Hospitalization)
  Sender: FDA-Public Use
  Company Number: 20100-JPN-04-0023

PATIENT
  Age: 66 Year
  Sex: Female

DRUGS (7)
  1. CILOSTAZOL [Suspect]
     Indication: CEREBRAL INFARCTION
     Dosage: 200MG; ORAL
     Route: 048
     Dates: start: 20030601, end: 20040106
  2. CILOSTAZOL [Suspect]
     Indication: PROPHYLAXIS
     Dosage: 200MG; ORAL
     Route: 048
     Dates: start: 20030601, end: 20040106
  3. ETHYL ICOSAPENTATE [Concomitant]
  4. NILVADIPINE [Concomitant]
  5. ETIZOLAM [Concomitant]
  6. AMANTADINE HCL [Concomitant]
  7. PROPIVERINE HYDROCHLORIDE [Concomitant]

REACTIONS (13)
  - ACTIVATED PARTIAL THROMBOPLASTIN TIME SHORTENED [None]
  - BLEEDING TIME PROLONGED [None]
  - BLOOD PRESSURE INCREASED [None]
  - BRAIN OEDEMA [None]
  - CEREBRAL HAEMORRHAGE [None]
  - CEREBROVASCULAR DISORDER [None]
  - DISEASE RECURRENCE [None]
  - HAEMATOCRIT DECREASED [None]
  - HAEMOGLOBIN DECREASED [None]
  - MONOPLEGIA [None]
  - PLATELET COUNT DECREASED [None]
  - PROTHROMBIN TIME SHORTENED [None]
  - WHITE BLOOD CELL COUNT DECREASED [None]
